FAERS Safety Report 5233606-0 (Version None)
Quarter: 2007Q1

REPORT INFORMATION
  Report Type: 
  Country: None (occurrence: None)
  Receive Date: 20070208
  Receipt Date: 20070201
  Transmission Date: 20070707
  Serious: Yes (Hospitalization)
  Sender: FDA-Public Use
  Company Number: 200511867FR

PATIENT
  Age: 71 Year
  Sex: Male
  Weight: 75 kg

DRUGS (6)
  1. DAONIL [Suspect]
     Route: 048
     Dates: end: 20050315
  2. GLUCOPHAGE [Suspect]
     Route: 048
     Dates: end: 20050315
  3. PLAVIX [Suspect]
     Route: 048
     Dates: end: 20050315
  4. TRIATEC                            /00885601/ [Concomitant]
     Indication: ESSENTIAL HYPERTENSION
     Route: 048
  5. DILTIAZEM [Concomitant]
     Indication: ESSENTIAL HYPERTENSION
     Route: 048
  6. TAHOR [Concomitant]
     Route: 048

REACTIONS (1)
  - LACTIC ACIDOSIS [None]
